FAERS Safety Report 4639242-9 (Version None)
Quarter: 2005Q2

REPORT INFORMATION
  Report Type: 
  Country: None (occurrence: None)
  Receive Date: 20050418
  Receipt Date: 20050412
  Transmission Date: 20051028
  Serious: Yes (Hospitalization, Other)
  Sender: FDA-Public Use
  Company Number: FRWYE577612APR05

PATIENT
  Age: 70 Year
  Sex: Female

DRUGS (8)
  1. SOPROL (BISOPROLOL, TABLET, 0) [Suspect]
     Indication: HYPERTENSION
     Dosage: 1 TABLET 1X PER 1 DAY ORAL
     Route: 048
  2. ELISOR (PRAVASTATIN SODIUM, , 0) [Suspect]
     Dosage: 40 MG 1X PER 1 DAY ORAL
     Route: 048
     Dates: start: 20041220, end: 20050119
  3. IKOREL (NICORANDIL, , 0) [Suspect]
     Dosage: 10 MG 2X PER 1 DAY ORAL
     Route: 048
  4. PLAVIX [Suspect]
     Dosage: 1 DOSAGE FORM 1X PER 1 DAY ORAL
     Route: 048
  5. PRAXILENE (NAFTIDROFURYL OXALATE, , 0) [Suspect]
     Dosage: 200 MG 3X PER 1 DAY ORAL
     Route: 048
     Dates: end: 20050119
  6. ZYLORIC (ALLOPURINOL, , 0) [Suspect]
     Dosage: ORAL
     Route: 048
     Dates: start: 20041220, end: 20050112
  7. AMLOR (AMLODIPINE BESILATE) [Concomitant]
  8. INSULIN INSULATARD (INSULIN INJECTION, ISOPHANE) [Concomitant]

REACTIONS (2)
  - EPIDERMAL NECROSIS [None]
  - STEVENS-JOHNSON SYNDROME [None]
